FAERS Safety Report 8543960-X (Version None)
Quarter: 2012Q3

REPORT INFORMATION
  Report Type: 
  Country: None (occurrence: None)
  Receive Date: 20120727
  Receipt Date: 20070519
  Transmission Date: 20120928
  Serious: Yes (Other)
  Sender: FDA-Public Use
  Company Number: CO-PFIZER INC-2012181124

PATIENT
  Age: 55 Year
  Sex: Female

DRUGS (5)
  1. METFORMIN [Concomitant]
     Dosage: 850 MG, 2X/DAY
  2. LIPITOR [Suspect]
     Dosage: 20 MG, 1X/DAY
  3. GLIBENCLAMIDE [Concomitant]
     Dosage: 5 MG, EACH 8 HOURS
  4. HYDROCHLOROTHIAZIDE [Concomitant]
     Dosage: 25 MG, 1X/DAY
  5. LEVOTHYROXINE SODIUM [Concomitant]
     Dosage: 50 UG, 1X/DAY

REACTIONS (3)
  - HYPOTHYROIDISM [None]
  - TYPE V HYPERLIPIDAEMIA [None]
  - DYSPNOEA [None]
